FAERS Safety Report 5171389-3 (Version None)
Quarter: 2006Q4

REPORT INFORMATION
  Report Type: 
  Country: None (occurrence: None)
  Receive Date: 20061213
  Receipt Date: 20061002
  Transmission Date: 20070319
  Serious: Yes (Hospitalization)
  Sender: FDA-Public Use
  Company Number: US-AMGEN-STX195586

PATIENT
  Sex: Female

DRUGS (2)
  1. ENBREL [Suspect]
     Indication: RHEUMATOID ARTHRITIS
     Route: 058
     Dates: start: 19990101
  2. PLAQUENIL [Concomitant]
     Route: 065

REACTIONS (7)
  - CELLULITIS [None]
  - CONTUSION [None]
  - FATIGUE [None]
  - HAEMORRHAGE SUBCUTANEOUS [None]
  - LOCALISED INFECTION [None]
  - OEDEMA PERIPHERAL [None]
  - SECRETION DISCHARGE [None]
